FAERS Safety Report 4863268-3 (Version None)
Quarter: 2005Q4

REPORT INFORMATION
  Report Type: 
  Country: None (occurrence: None)
  Receive Date: 20051219
  Receipt Date: 20051219
  Transmission Date: 20060501
  Serious: Yes (Other)
  Sender: FDA-Public Use
  Company Number: None

PATIENT
  Age: 33 Year
  Sex: Male

DRUGS (2)
  1. HALOPERIDOL DECANOATE [Suspect]
     Indication: SCHIZOPHRENIA
     Dosage: 100 MG / 1CC IM
     Route: 030
  2. HALOPERIDOL DECANOATE [Suspect]
     Indication: SCHIZOPHRENIA
     Dosage: 100 MG / 1CC IM
     Route: 030

REACTIONS (4)
  - INJECTION SITE MASS [None]
  - INJECTION SITE PAIN [None]
  - INJECTION SITE SWELLING [None]
  - PHARMACEUTICAL PRODUCT COMPLAINT [None]
